FAERS Safety Report 6399426-9 (Version None)
Quarter: 2009Q4

REPORT INFORMATION
  Report Type: 
  Country: None (occurrence: None)
  Receive Date: 20091014
  Receipt Date: 20091001
  Transmission Date: 20100525
  Serious: Yes (Other)
  Sender: FDA-Public Use
  Company Number: PHHY2009ES42202

PATIENT
  Age: 79 Year
  Sex: Female

DRUGS (2)
  1. STALEVO 100 [Interacting]
     Indication: PARKINSON'S DISEASE
     Dosage: 250 MG
     Route: 048
     Dates: start: 20090701
  2. MIRAPEX [Suspect]
     Indication: PARKINSON'S DISEASE
     Dosage: 0.54 MG
     Route: 048
     Dates: start: 20090825

REACTIONS (2)
  - DRUG INTERACTION [None]
  - HALLUCINATIONS, MIXED [None]
